FAERS Safety Report 7147827-3 (Version None)
Quarter: 2010Q4

REPORT INFORMATION
  Report Type: 
  Country: None (occurrence: None)
  Receive Date: 20101206
  Receipt Date: 20101206
  Transmission Date: 20110411
  Serious: No
  Sender: FDA-Public Use
  Company Number: None

PATIENT
  Sex: Female
  Weight: 97.2512 kg

DRUGS (3)
  1. WARFARIN SODIUM [Suspect]
     Indication: CARDIOMYOPATHY
     Dosage: 5 MG-1 M+F PO ; 5 MG 1/2 REST OF WEEK PO
     Route: 048
  2. WARFARIN SODIUM [Suspect]
     Indication: INTRACARDIAC THROMBUS
     Dosage: 5 MG-1 M+F PO ; 5 MG 1/2 REST OF WEEK PO
     Route: 048
  3. COUMADIN [Suspect]

REACTIONS (2)
  - INTERNATIONAL NORMALISED RATIO ABNORMAL [None]
  - PRODUCT SUBSTITUTION ISSUE [None]
